FAERS Safety Report 5310227-2 (Version None)
Quarter: 2007Q2

REPORT INFORMATION
  Report Type: 
  Country: None (occurrence: None)
  Receive Date: 20070427
  Receipt Date: 20070418
  Transmission Date: 20071010
  Serious: Yes (Other)
  Sender: FDA-Public Use
  Company Number: JP-ROCHE-492450

PATIENT
  Age: 11 Month
  Sex: Male
  Weight: 9 kg

DRUGS (7)
  1. TAMIFLU [Suspect]
     Dosage: FORM: DRY SYRUP.
     Route: 048
     Dates: start: 20070401, end: 20070401
  2. TAMIFLU [Suspect]
     Route: 048
     Dates: start: 20070402, end: 20070403
  3. ANHIBA [Suspect]
     Route: 054
  4. DIAPP [Suspect]
     Route: 054
  5. ASTOMIN [Concomitant]
     Route: 048
     Dates: start: 20070401, end: 20070404
  6. MUCODYNE [Concomitant]
     Route: 048
     Dates: start: 20070401, end: 20070404
  7. PERIACTIN [Concomitant]
     Route: 048
     Dates: start: 20070401, end: 20070404

REACTIONS (1)
  - CONVULSION [None]
